FAERS Safety Report 5823294-4 (Version None)
Quarter: 2008Q3

REPORT INFORMATION
  Report Type: 
  Country: None (occurrence: None)
  Receive Date: 20080725
  Receipt Date: 20080716
  Transmission Date: 20090109
  Serious: Yes (Hospitalization)
  Sender: FDA-Public Use
  Company Number: US-JNJFOC-20080203093

PATIENT
  Sex: Female
  Weight: 76.2 kg

DRUGS (6)
  1. REMICADE [Suspect]
     Indication: POLYARTHRITIS
     Dosage: 2 INFUSIONS
     Route: 042
  2. REMICADE [Suspect]
     Indication: PSORIATIC ARTHROPATHY
     Dosage: 2 INFUSIONS
     Route: 042
  3. PREDNISONE [Concomitant]
     Indication: PSORIATIC ARTHROPATHY
  4. SYNTHROID [Concomitant]
     Indication: HYPOTHYROIDISM
  5. METPHORMINE [Concomitant]
     Indication: DIABETES MELLITUS
  6. GLIPISIDE [Concomitant]
     Indication: DIABETES MELLITUS

REACTIONS (10)
  - ANAEMIA [None]
  - ARTHRALGIA [None]
  - CHILLS [None]
  - HYPERHIDROSIS [None]
  - HYPERSENSITIVITY [None]
  - INFUSION RELATED REACTION [None]
  - MALAISE [None]
  - PAIN [None]
  - SERUM SICKNESS [None]
  - VOMITING [None]
